FAERS Safety Report 8430551-4 (Version None)
Quarter: 2012Q2

REPORT INFORMATION
  Report Type: 
  Country: None (occurrence: None)
  Receive Date: 20120612
  Receipt Date: 20120601
  Transmission Date: 20120825
  Serious: Yes (Other)
  Sender: FDA-Public Use
  Company Number: JP-GLAXOSMITHKLINE-B0762190A

PATIENT
  Sex: Male
  Weight: 60 kg

DRUGS (19)
  1. PROMACTA [Suspect]
     Indication: IDIOPATHIC THROMBOCYTOPENIC PURPURA
     Dosage: 12.5MG PER DAY
     Route: 048
     Dates: start: 20101220, end: 20110123
  2. GASCON [Concomitant]
     Dosage: 120MG PER DAY
     Route: 048
     Dates: end: 20110220
  3. FERROUS CITRATE [Concomitant]
     Dosage: 100MG PER DAY
     Route: 048
     Dates: start: 20110801, end: 20120401
  4. IMURAN [Suspect]
     Indication: IDIOPATHIC THROMBOCYTOPENIC PURPURA
     Dosage: 50MG PER DAY
     Route: 048
     Dates: end: 20110123
  5. PREDNISOLONE [Suspect]
     Indication: IDIOPATHIC THROMBOCYTOPENIC PURPURA
     Dosage: 15MG PER DAY
     Route: 048
     Dates: end: 20101226
  6. POTASSIUM GLUCONATE TAB [Concomitant]
     Dosage: 15MG PER DAY
     Route: 048
  7. PROMACTA [Suspect]
     Dosage: 12.5MG PER DAY
     Route: 048
     Dates: start: 20110207, end: 20110424
  8. PREDNISOLONE [Suspect]
     Dosage: 10MG PER DAY
     Route: 048
     Dates: start: 20101227, end: 20110110
  9. PROMACTA [Suspect]
     Dosage: 12.5MG PER DAY
     Route: 048
     Dates: start: 20110530, end: 20120415
  10. COTRIM [Concomitant]
     Dosage: 1IUAX PER DAY
     Route: 048
     Dates: start: 20101220, end: 20110515
  11. PROTECADIN [Concomitant]
     Dosage: 10MG PER DAY
     Route: 048
  12. SLOW-K [Concomitant]
     Dosage: 1200MG PER DAY
     Route: 048
     Dates: start: 20110801
  13. PROMACTA [Suspect]
     Dosage: 6.25MG PER DAY
     Route: 048
     Dates: start: 20110124, end: 20110206
  14. PREDNISOLONE [Suspect]
     Dosage: 5MG PER DAY
     Route: 048
     Dates: start: 20110111
  15. ALDACTONE [Concomitant]
     Dosage: 25MG PER DAY
     Route: 048
     Dates: end: 20110501
  16. FLUCONAZOLE [Concomitant]
     Dosage: 100MG PER DAY
     Route: 048
     Dates: end: 20110515
  17. PROMACTA [Suspect]
     Dosage: 25MG PER DAY
     Route: 048
     Dates: start: 20110425, end: 20110529
  18. GASMOTIN [Concomitant]
     Dosage: 15MG PER DAY
     Route: 048
     Dates: end: 20110220
  19. CANDESARTAN CILEXETIL [Concomitant]
     Dosage: 4MG PER DAY
     Route: 048

REACTIONS (1)
  - LIVER DISORDER [None]
